FAERS Safety Report 11123152 (Version 1)
Quarter: 2015Q2

REPORT INFORMATION
  Report Type: Spontaneous
  Country: IL (occurrence: IL)
  Receive Date: 20150519
  Receipt Date: 20150519
  Transmission Date: 20150821
  Serious: Yes (Hospitalization)
  Sender: FDA-Public Use
  Company Number: IL-MYLANLABS-2015M1016385

PATIENT

DRUGS (6)
  1. ATORVASTATIN [Concomitant]
     Active Substance: ATORVASTATIN
     Route: 065
  2. VITAMIN D                          /00107901/ [Concomitant]
     Active Substance: ERGOCALCIFEROL
     Route: 065
  3. RISEDRONATE [Suspect]
     Active Substance: RISEDRONATE SODIUM
     Indication: OSTEOPOROSIS
     Dosage: 35 MG/WEEK
     Route: 065
     Dates: start: 200605, end: 201107
  4. RISEDRONATE [Suspect]
     Active Substance: RISEDRONATE SODIUM
     Dosage: MONTHLY DOSAGES OF 150MG
     Route: 065
     Dates: start: 201107, end: 201110
  5. HALOPERIDOL. [Suspect]
     Active Substance: HALOPERIDOL
     Indication: PSYCHOTIC DISORDER
     Dosage: 10 MG/D
     Route: 065
  6. AMLODIPINE [Concomitant]
     Active Substance: AMLODIPINE BESYLATE
     Route: 065

REACTIONS (11)
  - Constipation [Unknown]
  - Myalgia [Unknown]
  - Gastrointestinal disorder [Unknown]
  - Oesophageal pain [Unknown]
  - Urinary tract infection [Unknown]
  - Condition aggravated [Unknown]
  - Conjunctivitis [Unknown]
  - Back pain [Unknown]
  - Extrapyramidal disorder [Unknown]
  - Psychotic disorder [Recovering/Resolving]
  - Dyspepsia [Unknown]
